FAERS Safety Report 5465919-1 (Version None)
Quarter: 2007Q3

REPORT INFORMATION
  Report Type: 
  Country: None (occurrence: None)
  Receive Date: 20070924
  Receipt Date: 20070913
  Transmission Date: 20080115
  Serious: Yes (Hospitalization)
  Sender: FDA-Public Use
  Company Number: US-JNJFOC-20070903103

PATIENT
  Sex: Female
  Weight: 147 kg

DRUGS (11)
  1. RISPERIDONE [Suspect]
     Indication: SCHIZOPHRENIA
  2. PREVACID [Concomitant]
  3. HALDOL [Concomitant]
  4. TOPAMAX [Concomitant]
  5. COGENTIN [Concomitant]
  6. LIPITOR [Concomitant]
  7. TENORMIN [Concomitant]
  8. LEVOXYL [Concomitant]
  9. INSULIN [Concomitant]
  10. DITROPAN [Concomitant]
  11. DEPAKOTE [Concomitant]

REACTIONS (6)
  - CARDIAC FAILURE CONGESTIVE [None]
  - DIABETES MELLITUS [None]
  - DYSPNOEA [None]
  - PICKWICKIAN SYNDROME [None]
  - PULMONARY HYPERTENSION [None]
  - WEIGHT INCREASED [None]
